FAERS Safety Report 6404930-0 (Version None)
Quarter: 2009Q4

REPORT INFORMATION
  Report Type: 
  Country: None (occurrence: None)
  Receive Date: 20091019
  Receipt Date: 20091012
  Transmission Date: 20100525
  Serious: Yes (Hospitalization)
  Sender: FDA-Public Use
  Company Number: DE-ABBOTT-09P-062-0587183-00

PATIENT
  Sex: Male
  Weight: 63 kg

DRUGS (3)
  1. KALETRA [Suspect]
     Indication: HIV INFECTION
     Route: 048
     Dates: start: 20061215
  2. NOVAMINSULFON [Concomitant]
     Indication: TUBULOINTERSTITIAL NEPHRITIS
     Dates: start: 20090519, end: 20090716
  3. OMEPRAZOLE [Concomitant]
     Indication: ABDOMINAL DISCOMFORT
     Route: 048
     Dates: start: 20080313

REACTIONS (1)
  - POISONING [None]
